FAERS Safety Report 6589535-3 (Version None)
Quarter: 2010Q1

REPORT INFORMATION
  Report Type: 
  Country: None (occurrence: None)
  Receive Date: 20100212
  Receipt Date: 20090624
  Transmission Date: 20100710
  Serious: Yes (Hospitalization, Other)
  Sender: FDA-Public Use
  Company Number: 005286

PATIENT
  Age: 55 Year
  Sex: Male

DRUGS (8)
  1. LACOSAMIDE [Suspect]
     Indication: CONVULSION
     Dosage: (200 MG TID, 3X200 MG I.V INTRAVENOUS))
     Route: 042
  2. LACOSAMIDE [Suspect]
     Indication: STATUS EPILEPTICUS
     Dosage: (200 MG TID, 3X200 MG I.V INTRAVENOUS))
     Route: 042
  3. LEVETIRACETAM [Suspect]
     Indication: CONVULSION
     Dosage: (1000MG/60MIN)
  4. LEVETIRACETAM [Suspect]
     Indication: STATUS EPILEPTICUS
     Dosage: (1000MG/60MIN)
  5. LORAZEPAM [Suspect]
     Indication: CONVULSION
     Dosage: (3 MG LORAZEPAM)
  6. LORAZEPAM [Suspect]
     Indication: STATUS EPILEPTICUS
     Dosage: (3 MG LORAZEPAM)
  7. MIDAZOLAM HCL [Suspect]
     Indication: CONVULSION
  8. PROPOFOL [Suspect]
     Dosage: (200 MG/H)

REACTIONS (3)
  - LUNG DISORDER [None]
  - OFF LABEL USE [None]
  - PNEUMONIA ASPIRATION [None]
